FAERS Safety Report 4520478-2 (Version None)
Quarter: 2004Q4

REPORT INFORMATION
  Report Type: 
  Country: None (occurrence: None)
  Receive Date: 20041203
  Receipt Date: 20041103
  Transmission Date: 20050328
  Serious: Yes (Hospitalization)
  Sender: FDA-Public Use
  Company Number: STA-AE-04-MTX-538

PATIENT
  Age: 55 Year
  Sex: Male

DRUGS (4)
  1. METHOTREXATE [Suspect]
     Indication: RHEUMATOID ARTHRITIS
     Dosage: 15 MG1ZXX PER 1 WK, ORAL
     Route: 048
     Dates: start: 19980403, end: 20040127
  2. PREDNISONE [Suspect]
     Dosage: 7 MG 1X PER DAY, ORAL
     Route: 048
     Dates: start: 19980312
  3. REMICADE [Suspect]
     Dosage: 500 MG 1X PER 6 WK, INTRAVENOUS
     Route: 042
     Dates: start: 20020610, end: 20040127
  4. CELEBREX [Concomitant]

REACTIONS (2)
  - PULMONARY MASS [None]
  - RHEUMATOID LUNG [None]
